FAERS Safety Report 11415451 (Version 3)
Quarter: 2019Q3

REPORT INFORMATION
  Report Type: Spontaneous
  Country: RO (occurrence: RO)
  Receive Date: 20150825
  Receipt Date: 20190716
  Transmission Date: 20191004
  Serious: Yes (Hospitalization, Other)
  Sender: FDA-Public Use
  Company Number: RO-SUN PHARMACEUTICAL INDUSTRIES LTD-2015R1-102141

PATIENT
  Age: 33 Year
  Sex: Female

DRUGS (3)
  1. BUDENOFALK [Interacting]
     Active Substance: BUDESONIDE
     Indication: CROHN^S DISEASE
     Dosage: 9 MILLIGRAM, DAILY
     Route: 048
     Dates: start: 2010
  2. FLUVOXAMINE [Suspect]
     Active Substance: FLUVOXAMINE
     Indication: PRODUCT USED FOR UNKNOWN INDICATION
     Dosage: 50 MILLIGRAM, DAILY
     Route: 065
     Dates: start: 2012
  3. BUDENOFALK [Interacting]
     Active Substance: BUDESONIDE
     Dosage: 6 MILLIGRAM, DAILY
     Route: 048
     Dates: start: 2010

REACTIONS (2)
  - Cushing^s syndrome [Recovered/Resolved]
  - Drug interaction [Recovered/Resolved]
